FAERS Safety Report 5487728-X (Version None)
Quarter: 2007Q4

REPORT INFORMATION
  Report Type: 
  Country: None (occurrence: None)
  Receive Date: 20071001
  Receipt Date: 20070322
  Transmission Date: 20080405
  Serious: Yes (Other)
  Sender: FDA-Public Use
  Company Number: SP01183

PATIENT
  Age: 73 Year
  Sex: Male
  Weight: 85.2762 kg

DRUGS (2)
  1. OSMOPREP [Suspect]
     Dosage: SPLIT DOSING 12 HRS. APART, ORAL
     Route: 048
     Dates: start: 20070221, end: 20070222
  2. LISINOPRIL [Concomitant]

REACTIONS (2)
  - BLOOD CREATININE INCREASED [None]
  - BLOOD UREA INCREASED [None]
